FAERS Safety Report 6214582-0 (Version None)
Quarter: 2009Q2

REPORT INFORMATION
  Report Type: 
  Country: None (occurrence: None)
  Receive Date: 20090604
  Receipt Date: 20090504
  Transmission Date: 20091009
  Serious: Yes (Hospitalization)
  Sender: FDA-Public Use
  Company Number: FR-ASTRAZENECA-2009CG00870

PATIENT
  Age: 32 Year
  Sex: Female

DRUGS (3)
  1. BUPIVACAINE [Suspect]
     Indication: SPINAL ANAESTHESIA
     Route: 024
  2. MORPHINE [Suspect]
     Indication: SPINAL ANAESTHESIA
     Route: 024
  3. LEVOTHYROX [Concomitant]
     Indication: AUTOIMMUNE THYROIDITIS

REACTIONS (1)
  - PARAPLEGIA [None]
